FAERS Safety Report 9208364 (Version 1)
Quarter: 2013Q2

REPORT INFORMATION
  Report Type: Spontaneous
  Country: DE (occurrence: DE)
  Receive Date: 20130404
  Receipt Date: 20130404
  Transmission Date: 20140414
  Serious: Yes (Hospitalization)
  Sender: FDA-Public Use
  Company Number: DE-BIOGENIDEC-2013BI029064

PATIENT
  Age: 51 Year
  Sex: Female
  Weight: 71 kg

DRUGS (4)
  1. AVONEX [Suspect]
     Indication: MULTIPLE SCLEROSIS
     Route: 030
     Dates: start: 20090101
  2. JURNISTA [Concomitant]
     Indication: SPINAL PAIN
     Dates: start: 201009
  3. LYRICA [Concomitant]
     Indication: NEURALGIA
  4. CIMETIDINE [Concomitant]
     Indication: DYSPEPSIA
     Dates: start: 2003

REACTIONS (4)
  - Spinal pain [Recovered/Resolved with Sequelae]
  - Hypoaesthesia [Recovered/Resolved with Sequelae]
  - Pain [Recovered/Resolved with Sequelae]
  - Optic neuritis [Not Recovered/Not Resolved]
